FAERS Safety Report 6156794-0 (Version None)
Quarter: 2009Q2

REPORT INFORMATION
  Report Type: 
  Country: None (occurrence: None)
  Receive Date: 20090416
  Receipt Date: 20090409
  Transmission Date: 20091009
  Serious: Yes (Other)
  Sender: FDA-Public Use
  Company Number: PHHY2009DE14032

PATIENT
  Age: 56 Year
  Sex: Female

DRUGS (2)
  1. ZOMETA [Suspect]
     Indication: BREAST CANCER
     Dosage: 4 MG, EVERY 4 WEEKS
     Route: 042
     Dates: start: 20020101, end: 20061101
  2. ZOMETA [Suspect]
     Dosage: 4 MG, EVERY 6-8 WEEKS
     Route: 042
     Dates: start: 20080101

REACTIONS (1)
  - OSTEONECROSIS [None]
